FAERS Safety Report 24798020 (Version 1)
Quarter: 2025Q1

REPORT INFORMATION
  Report Type: Spontaneous
  Country: JP (occurrence: JP)
  Receive Date: 20250102
  Receipt Date: 20250102
  Transmission Date: 20250409
  Serious: Yes (Life-Threatening, Hospitalization)
  Sender: STRIDES
  Company Number: None

PATIENT
  Age: 63 Year
  Sex: Male

DRUGS (2)
  1. PREDNISOLONE [Suspect]
     Active Substance: PREDNISOLONE
     Indication: Graft versus host disease
     Route: 065
  2. PREDNISOLONE [Suspect]
     Active Substance: PREDNISOLONE
     Route: 065

REACTIONS (6)
  - Aortic valve incompetence [Unknown]
  - Cardiac failure acute [Unknown]
  - Pulmonary congestion [Unknown]
  - Cardiomegaly [Unknown]
  - Endocarditis bacterial [Unknown]
  - Staphylococcal infection [Unknown]
